FAERS Safety Report 24351130 (Version 1)
Quarter: 2024Q3

REPORT INFORMATION
  Report Type: Report from Study
  Country: BG (occurrence: BG)
  Receive Date: 20240923
  Receipt Date: 20240923
  Transmission Date: 20241016
  Serious: No
  Sender: ROCHE
  Company Number: BG-ROCHE-2505199

PATIENT
  Age: 64 Year
  Sex: Female
  Weight: 55.0 kg

DRUGS (3)
  1. HERCEPTIN [Suspect]
     Active Substance: TRASTUZUMAB
     Indication: HER2 positive breast cancer
     Dosage: MOST RECENT DOSE PRIOR TO THE EVENT: 08/MAY/2019
     Route: 042
     Dates: start: 20190410, end: 20190410
  2. PERJETA [Suspect]
     Active Substance: PERTUZUMAB
     Indication: HER2 positive breast cancer
     Dosage: MOST RECENT DOSE PRIOR TO THE EVENT: 08/MAY/2019
     Route: 042
     Dates: start: 20190410, end: 20190410
  3. TAXOTERE [Suspect]
     Active Substance: DOCETAXEL
     Indication: HER2 positive breast cancer
     Dosage: DATE OF MOST RECENT DOSE PRIOR TO EVENT: 07/AUG/2019
     Route: 042
     Dates: start: 20190410

REACTIONS (1)
  - Haematotoxicity [Recovered/Resolved]

NARRATIVE: CASE EVENT DATE: 20190814
